FAERS Safety Report 12750339 (Version 3)
Quarter: 2017Q1

REPORT INFORMATION
  Report Type: Spontaneous
  Country: US (occurrence: US)
  Receive Date: 20160916
  Receipt Date: 20170106
  Transmission Date: 20170428
  Serious: Yes (Other)
  Sender: FDA-Public Use
  Company Number: US-SA-2016SA168392

PATIENT
  Age: 67 Year
  Sex: Male
  Weight: 104.32 kg

DRUGS (26)
  1. SOLOSTAR [Concomitant]
     Active Substance: DEVICE
     Indication: DIABETES MELLITUS
     Dates: start: 2011
  2. HYDROCODONE W/ACETAMINOPHEN [Concomitant]
     Active Substance: ACETAMINOPHEN\HYDROCODONE BITARTRATE
     Dosage: 325-7.5 MG
     Route: 048
  3. CALCITRATE [Concomitant]
     Active Substance: CALCIUM CITRATE
     Dosage: 667 MG TABLET, SIG: 1 TABLET ORALLY TWICE A DAY
     Route: 048
  4. SEROQUEL [Concomitant]
     Active Substance: QUETIAPINE FUMARATE
     Dosage: 50 MG TABLET, SIG: 1 TABLET AT BEDTIME ORALLY ONCE A DAY
     Route: 048
  5. CYCLOBENZAPRINE HYDROCHLORIDE. [Concomitant]
     Active Substance: CYCLOBENZAPRINE HYDROCHLORIDE
     Dosage: 10 MG, AS NEEDED ORALLY THREE TIMES A DAY
     Route: 048
     Dates: start: 20151021
  6. VITAMINS NOS [Concomitant]
     Active Substance: VITAMINS
     Route: 048
  7. MIRALAX [Concomitant]
     Active Substance: POLYETHYLENE GLYCOL 3350
     Dosage: POWDER, SIG: 1 CAPFUL ORALLY DAILY (MIX WITH 6 OZ OF LIQUID)
     Route: 048
     Dates: start: 20140617
  8. LEVOBUNOLOL HYDROCHLORIDE. [Concomitant]
     Active Substance: LEVOBUNOLOL HYDROCHLORIDE
     Dosage: 1 DROP INTO AFFECTED EYE OPHTHALMIC; 0.5% SOLUTION
     Route: 047
  9. ASPIR [Concomitant]
     Active Substance: ASPIRIN
     Dosage: 81 MG TABLET DELAYED RELEASE, SIG: 1 TABLET ORALLY ONCE A DAY
     Route: 048
  10. HUMULIN R [Concomitant]
     Active Substance: INSULIN HUMAN
     Dates: start: 20160321
  11. CLOPIDOGREL [Concomitant]
     Active Substance: CLOPIDOGREL BISULFATE
  12. OMEPRAZOLE. [Concomitant]
     Active Substance: OMEPRAZOLE
     Dosage: 20 MG DELAYED RELEASE
     Route: 048
  13. BUMETANIDE. [Concomitant]
     Active Substance: BUMETANIDE
     Dosage: 2 MG TABLET, SIG: 2 TABLETS ORALLY DAILY
     Route: 048
  14. ALBUTEROL SULFATE. [Concomitant]
     Active Substance: ALBUTEROL SULFATE
     Route: 055
  15. POLYETHYLENE GLYCOL [Concomitant]
     Active Substance: POLYETHYLENE GLYCOLS
     Dosage: DISSOLVE AND TAKE ONE CAPFUL
     Route: 048
  16. AMBIEN [Concomitant]
     Active Substance: ZOLPIDEM TARTRATE
     Dosage: 10 MG TABLET, SIG: 1 TABLET AT BEDTIME AS NEEDED ORALLY ONCE A DAY
     Route: 048
     Dates: start: 20160719
  17. OXYBUTYNIN CHLORIDE. [Concomitant]
     Active Substance: OXYBUTYNIN CHLORIDE
     Dosage: 5 MG
     Route: 048
     Dates: start: 20150903
  18. ATORVASTATIN CALCIUM. [Concomitant]
     Active Substance: ATORVASTATIN CALCIUM
     Dosage: 40 MG TABLET, SIG: 1 TABLET ORALLY ONCE A DAY
     Route: 048
  19. CLONAZEPAM. [Concomitant]
     Active Substance: CLONAZEPAM
     Dosage: ORALLY DAILY AS NEEDED
     Route: 048
  20. ACYCLOVIR. [Concomitant]
     Active Substance: ACYCLOVIR
     Dosage: 800 MG TABLET, SIG: 1 TABLET ORALLY TWICE A DAY
     Route: 048
  21. CARVEDILOL. [Concomitant]
     Active Substance: CARVEDILOL
     Dosage: 3.125 MG TABLET, SIG: ORALLY
     Route: 048
  22. PROMETHAZINE W/CODEINE [Concomitant]
     Active Substance: CODEINE\PROMETHAZINE
     Indication: COUGH
     Dosage: PROMETHAZINE-CODEINE 6.25-10 MG/5ML SYRUP, SIG: 5 ML AS NEEDED ORALLY EVERY 4 HRS PRN COUGH
     Route: 048
     Dates: start: 20160331
  23. LANTUS SOLOSTAR [Suspect]
     Active Substance: INSULIN GLARGINE
     Indication: DIABETES MELLITUS
     Dosage: FORM: SOLUTION DOSE:66 UNIT(S)
     Route: 058
     Dates: start: 2011
  24. ALPRAZOLAM. [Concomitant]
     Active Substance: ALPRAZOLAM
     Dosage: BEFORE DIALYSIS
     Route: 048
  25. SERTRALINE HYDROCHLORIDE. [Concomitant]
     Active Substance: SERTRALINE HYDROCHLORIDE
     Dosage: 50 MG
     Route: 048
  26. TRAVOPROST [Concomitant]
     Active Substance: TRAVOPROST
     Dosage: 0.004 % SOLUTION, SIG: 1 DROP INTO AFFECTED EYE IN THE EVENING OPHTHALMIC ONCE A DAY
     Route: 047

REACTIONS (1)
  - Renal impairment [Unknown]

NARRATIVE: CASE EVENT DATE: 2016
